FAERS Safety Report 19375057 (Version 1)
Quarter: 2021Q2

REPORT INFORMATION
  Report Type: Spontaneous
  Country: BR (occurrence: BR)
  Receive Date: 20210604
  Receipt Date: 20210604
  Transmission Date: 20210717
  Serious: Yes (Other)
  Sender: FDA-Public Use
  Company Number: BR-REGENERON PHARMACEUTICALS, INC.-2021-55918

PATIENT

DRUGS (1)
  1. EYLEA [Suspect]
     Active Substance: AFLIBERCEPT
     Indication: NEOVASCULAR AGE-RELATED MACULAR DEGENERATION
     Dosage: UNKNOWN NUMBER OF INJECTIONS

REACTIONS (3)
  - Visual acuity reduced [Recovered/Resolved]
  - Eye inflammation [Recovered/Resolved]
  - Retinal artery occlusion [Recovered/Resolved]
